FAERS Safety Report 10143296 (Version 1)
Quarter: 2014Q2

REPORT INFORMATION
  Report Type: Report from Study
  Country: DE (occurrence: DE)
  Receive Date: 20140430
  Receipt Date: 20140430
  Transmission Date: 20141212
  Serious: Yes (Death, Life-Threatening, Hospitalization, Other)
  Sender: FDA-Public Use
  Company Number: DE-ROCHE-GNE237423

PATIENT
  Age: 56 Year
  Sex: Female
  Weight: 75.08 kg

DRUGS (12)
  1. RITUXIMAB [Suspect]
     Indication: RHEUMATOID ARTHRITIS
     Dosage: 1000 MG, SINGLE
     Route: 042
     Dates: start: 20070213
  2. INFLIXIMAB [Suspect]
     Indication: RHEUMATOID ARTHRITIS
     Dosage: 3300 MG, Q2M
     Route: 042
     Dates: start: 200508, end: 200510
  3. INFLIXIMAB [Suspect]
     Dosage: 3300 MG, UNK
     Route: 042
     Dates: start: 200511, end: 20061214
  4. METHOTREXATE [Suspect]
     Indication: RHEUMATOID ARTHRITIS
     Dosage: 15 MG, 1/WEEK
     Route: 048
     Dates: start: 20070111
  5. TERIPARATIDE [Concomitant]
     Indication: OSTEOPOROSIS
     Dosage: 0.75 MG, UNK
     Route: 058
     Dates: start: 20051028
  6. CALCIUM D3 [Concomitant]
     Indication: OSTEOPOROSIS
     Dosage: 1 UNK, UNK
     Route: 065
     Dates: start: 20061025
  7. FOLCUR [Concomitant]
     Indication: PRODUCT USED FOR UNKNOWN INDICATION
     Route: 065
     Dates: start: 200701
  8. METYSOLON [Concomitant]
     Indication: PRODUCT USED FOR UNKNOWN INDICATION
  9. FORSTEO [Concomitant]
     Indication: PRODUCT USED FOR UNKNOWN INDICATION
     Route: 065
     Dates: start: 200510
  10. VOLTAREN [Concomitant]
     Indication: PRODUCT USED FOR UNKNOWN INDICATION
  11. MOBLOC [Concomitant]
     Indication: PRODUCT USED FOR UNKNOWN INDICATION
  12. RAMIPRIL [Concomitant]
     Indication: PRODUCT USED FOR UNKNOWN INDICATION

REACTIONS (5)
  - Acute respiratory distress syndrome [Fatal]
  - Multi-organ failure [Unknown]
  - Pleural effusion [Unknown]
  - Anaemia [Unknown]
  - Pneumonia [Unknown]
